FAERS Safety Report 19744394 (Version 1)
Quarter: 2021Q3

REPORT INFORMATION
  Report Type: Spontaneous
  Country: US (occurrence: US)
  Receive Date: 20210825
  Receipt Date: 20210825
  Transmission Date: 20211014
  Serious: No
  Sender: FDA-Public Use
  Company Number: US-PERRIGO-21US002321

PATIENT
  Age: 64 Year
  Sex: Female
  Weight: 61.22 kg

DRUGS (4)
  1. EVAMIST [Suspect]
     Active Substance: ESTRADIOL
     Indication: MENOPAUSE
     Dosage: 1.53 TO 3.06 MG, QD
     Route: 062
     Dates: end: 20210131
  2. EVAMIST [Suspect]
     Active Substance: ESTRADIOL
     Indication: HOT FLUSH
     Dosage: UNKNOWN, QD
     Route: 062
     Dates: start: 20210201, end: 20210204
  3. EVAMIST [Suspect]
     Active Substance: ESTRADIOL
     Dosage: 1.53 TO 3.06 MG, QD
     Route: 062
     Dates: start: 20210205
  4. TESTOSTERONE. [Concomitant]
     Active Substance: TESTOSTERONE
     Indication: MENOPAUSE
     Dosage: UNK
     Route: 065

REACTIONS (2)
  - Incorrect dose administered [Recovered/Resolved]
  - Therapeutic product effect decreased [Recovered/Resolved]

NARRATIVE: CASE EVENT DATE: 20210201
